FAERS Safety Report 11652563 (Version 1)
Quarter: 2015Q4

REPORT INFORMATION
  Report Type: Spontaneous
  Country: US (occurrence: None)
  Receive Date: 20151021
  Receipt Date: 20151021
  Transmission Date: 20160304
  Serious: Yes (Hospitalization)
  Sender: FDA-Public Use
  Company Number: None

PATIENT
  Age: 46 Year
  Sex: Female
  Weight: 89.3 kg

DRUGS (1)
  1. AFATINIB [Suspect]
     Active Substance: AFATINIB
     Dates: end: 20150924

REACTIONS (9)
  - Pleural effusion [None]
  - Blood albumin decreased [None]
  - Empyema [None]
  - Transferrin saturation decreased [None]
  - Anaemia [None]
  - Asthma [None]
  - Culture positive [None]
  - Catheter site related reaction [None]
  - Bacterial infection [None]

NARRATIVE: CASE EVENT DATE: 20150924
